FAERS Safety Report 9890534 (Version 1)
Quarter: 2014Q1

REPORT INFORMATION
  Report Type: Spontaneous
  Country: US (occurrence: US)
  Receive Date: 20140212
  Receipt Date: 20140212
  Transmission Date: 20141002
  Serious: Yes (Other)
  Sender: FDA-Public Use
  Company Number: US-ACCORD-021815

PATIENT
  Age: 79 Year
  Sex: Female

DRUGS (2)
  1. METHOTREXATE [Suspect]
     Indication: DERMATOMYOSITIS
  2. PREDNISONE [Suspect]
     Indication: DERMATOMYOSITIS

REACTIONS (4)
  - Ulcer [Recovered/Resolved]
  - Herpes zoster [Recovered/Resolved]
  - Epidermal necrosis [Recovered/Resolved]
  - Off label use [Unknown]
